FAERS Safety Report 6934066-1 (Version None)
Quarter: 2010Q3

REPORT INFORMATION
  Report Type: 
  Country: None (occurrence: None)
  Receive Date: 20100820
  Receipt Date: 20100804
  Transmission Date: 20110219
  Serious: No
  Sender: FDA-Public Use
  Company Number: B0613447A

PATIENT
  Sex: Female
  Weight: 60 kg

DRUGS (4)
  1. RELENZA [Suspect]
     Indication: INFLUENZA
     Dosage: 20MG PER DAY
     Route: 055
     Dates: start: 20091126, end: 20091130
  2. MEDICON [Concomitant]
     Indication: PRODUCTIVE COUGH
     Dosage: 45MG PER DAY
     Route: 048
     Dates: start: 20091126, end: 20091126
  3. DASEN [Concomitant]
     Indication: ANTIINFLAMMATORY THERAPY
     Dosage: 30MG PER DAY
     Route: 048
     Dates: start: 20091126, end: 20091126
  4. CALONAL [Concomitant]
     Indication: ANTIPYRESIS
     Dosage: 200MG PER DAY
     Route: 048
     Dates: start: 20091126, end: 20091126

REACTIONS (1)
  - DRUG EXPOSURE DURING PREGNANCY [None]
